FAERS Safety Report 11455942 (Version 5)
Quarter: 2015Q3

REPORT INFORMATION
  Report Type: Report from Study
  Country: US (occurrence: US)
  Receive Date: 20150903
  Receipt Date: 20150924
  Transmission Date: 20151125
  Serious: Yes (Death, Hospitalization)
  Sender: FDA-Public Use
  Company Number: US-JNJFOC-20150901909

PATIENT
  Age: 81 Year
  Sex: Male
  Weight: 108 kg

DRUGS (19)
  1. METFORMIN [Concomitant]
     Active Substance: METFORMIN HYDROCHLORIDE
  2. ZAROXOLYN [Concomitant]
     Active Substance: METOLAZONE
  3. METOPROLOL [Concomitant]
     Active Substance: METOPROLOL
  4. IMBRUVICA [Suspect]
     Active Substance: IBRUTINIB
     Indication: MANTLE CELL LYMPHOMA
     Route: 048
     Dates: start: 20150804
  5. PANTOPRAZOLE [Concomitant]
     Active Substance: PANTOPRAZOLE SODIUM
  6. FISH OIL [Concomitant]
     Active Substance: FISH OIL
  7. DECADRON [Concomitant]
     Active Substance: DEXAMETHASONE
  8. DILTIAZEM [Concomitant]
     Active Substance: DILTIAZEM
  9. GLIPIZIDE. [Concomitant]
     Active Substance: GLIPIZIDE
  10. VITAMIN B12 [Concomitant]
     Active Substance: CYANOCOBALAMIN
     Route: 060
  11. LORAZEPAM. [Concomitant]
     Active Substance: LORAZEPAM
  12. PRAVACHOL [Concomitant]
     Active Substance: PRAVASTATIN SODIUM
  13. SYNTHROID [Concomitant]
     Active Substance: LEVOTHYROXINE SODIUM
  14. ASPIRIN. [Concomitant]
     Active Substance: ASPIRIN
     Dates: end: 201508
  15. ASPIRIN. [Concomitant]
     Active Substance: ASPIRIN
  16. COLACE [Concomitant]
     Active Substance: DOCUSATE SODIUM
  17. KCL [Concomitant]
     Active Substance: POTASSIUM CHLORIDE
  18. ASPIRIN. [Concomitant]
     Active Substance: ASPIRIN
  19. LASIX [Concomitant]
     Active Substance: FUROSEMIDE

REACTIONS (12)
  - Hypochloraemia [Unknown]
  - Vitamin B12 deficiency [Unknown]
  - Dehydration [Unknown]
  - Atrial fibrillation [Recovering/Resolving]
  - Atelectasis [Unknown]
  - Hyponatraemia [Recovered/Resolved]
  - Disease progression [Fatal]
  - Acute kidney injury [Unknown]
  - Pain [Unknown]
  - Incorrect dose administered [Unknown]
  - Neuropathy peripheral [Unknown]
  - Toxic encephalopathy [Unknown]

NARRATIVE: CASE EVENT DATE: 201508
